FAERS Safety Report 21819047 (Version 4)
Quarter: 2023Q1

REPORT INFORMATION
  Report Type: Spontaneous
  Country: AT (occurrence: AT)
  Receive Date: 20230104
  Receipt Date: 20230117
  Transmission Date: 20230418
  Serious: Yes (Hospitalization, Other)
  Sender: FDA-Public Use
  Company Number: AT-BASGAGES-2022-111835

PATIENT
  Sex: Male

DRUGS (13)
  1. CARIPRAZINE HYDROCHLORIDE [Suspect]
     Active Substance: CARIPRAZINE HYDROCHLORIDE
     Indication: Product used for unknown indication
     Dosage: 4.5 MG, QD
     Dates: start: 20220826
  2. DOXYCYCLINE [Suspect]
     Active Substance: DOXYCYCLINE
     Indication: Infection
     Dosage: 200 MG, QD
     Dates: start: 20220903, end: 20220923
  3. CLOZAPINE [Suspect]
     Active Substance: CLOZAPINE
     Indication: Product used for unknown indication
     Dosage: 200 MG, QD
     Dates: start: 20220913
  4. CLOZAPINE [Suspect]
     Active Substance: CLOZAPINE
     Dosage: 250 MG, QD
     Dates: start: 20220811, end: 20220912
  5. CLOZAPINE [Suspect]
     Active Substance: CLOZAPINE
     Dosage: 100 MG, QD
     Dates: start: 20220719, end: 20220810
  6. CLOZAPINE [Suspect]
     Active Substance: CLOZAPINE
     Dosage: 200 MG, QD
     Dates: start: 20220711, end: 20220715
  7. CLOZAPINE [Suspect]
     Active Substance: CLOZAPINE
     Dosage: 100 MG, QD
     Dates: start: 20220704, end: 20220710
  8. CLOZAPINE [Suspect]
     Active Substance: CLOZAPINE
     Dosage: 25 MG, QD
     Dates: start: 20220615, end: 20220703
  9. ZOLPIDEM [Suspect]
     Active Substance: ZOLPIDEM TARTRATE
     Indication: Product used for unknown indication
     Dosage: 10 MG, QD
     Dates: start: 20220919, end: 20220919
  10. ZOLPIDEM [Suspect]
     Active Substance: ZOLPIDEM TARTRATE
     Dosage: 10 MG, QD
     Dates: start: 20220510, end: 20220609
  11. ABILIFY [Suspect]
     Active Substance: ARIPIPRAZOLE
     Indication: Product used for unknown indication
     Dosage: 5 MG, QD
     Dates: start: 20220924, end: 20220924
  12. ABILIFY [Suspect]
     Active Substance: ARIPIPRAZOLE
     Dosage: 10 MG, QD
     Dates: start: 20220921, end: 20220923
  13. ABILIFY [Suspect]
     Active Substance: ARIPIPRAZOLE
     Dosage: 15 MG, QD
     Dates: start: 20220520, end: 20220920

REACTIONS (2)
  - Delirium [Recovered/Resolved]
  - Confusional state [Recovered/Resolved]

NARRATIVE: CASE EVENT DATE: 20220920
